FAERS Safety Report 18605827 (Version 1)
Quarter: 2020Q4

REPORT INFORMATION
  Report Type: Other
  Country: US (occurrence: US)
  Receive Date: 20201211
  Receipt Date: 20201211
  Transmission Date: 20210114
  Serious: Yes (Other)
  Sender: FDA-Public Use
  Company Number: US-ROCHE-2730006

PATIENT

DRUGS (3)
  1. VEMURAFENIB. [Suspect]
     Active Substance: VEMURAFENIB
     Indication: ERDHEIM-CHESTER DISEASE
     Route: 065
  2. COBIMETINIB. [Concomitant]
     Active Substance: COBIMETINIB
     Indication: ERDHEIM-CHESTER DISEASE
     Route: 065
  3. IMATINIB. [Concomitant]
     Active Substance: IMATINIB MESYLATE
     Indication: ERDHEIM-CHESTER DISEASE

REACTIONS (1)
  - Hypertensive encephalopathy [Unknown]
